FAERS Safety Report 9998909 (Version 1)
Quarter: 2014Q1

REPORT INFORMATION
  Report Type: Spontaneous
  Country: US (occurrence: US)
  Receive Date: 20140312
  Receipt Date: 20140312
  Transmission Date: 20141002
  Serious: No
  Sender: FDA-Public Use
  Company Number: US-009507513-1403USA004980

PATIENT
  Sex: Female

DRUGS (16)
  1. CLARITIN [Suspect]
     Dosage: 1 DF, QD
     Route: 048
  2. BACLOFEN [Concomitant]
     Dosage: 1 PO TID ONLY PRN
     Route: 048
  3. CYTOMEL [Concomitant]
     Dosage: 5 MICROGRAM, BID
     Route: 048
  4. NEURONTIN [Concomitant]
     Dosage: 1/2-1 TABLET, BID
     Route: 048
  5. SYNTHROID [Concomitant]
     Dosage: 1 TABLET DAILY
     Route: 048
  6. SPIRONOLACTONE [Concomitant]
     Dosage: 1 TABLET DAILY
     Route: 048
  7. MAGNESIUM CITRATE [Concomitant]
     Dosage: 1-2 TABLETS QHS
     Route: 048
  8. CELEBREX [Concomitant]
     Dosage: 1 TABLET BID
     Route: 048
  9. METAMUCIL [Concomitant]
     Dosage: 1 DOSE POWER FOR RECONSITITUTION BID AS DIRECTED
     Route: 048
  10. FLONASE [Concomitant]
     Dosage: 1 SPRAY EACH NOSTRAL QD
     Route: 045
  11. LEVAQUIN [Concomitant]
     Dosage: 1 TABLET DAILY FOR 10 DAYS
     Route: 048
  12. NARDIL [Concomitant]
     Dosage: TWO TABLETS AM. AFTERNOON, EVENING
     Route: 048
  13. OXYBUTYNIN CHLORIDE [Concomitant]
     Dosage: TAKE 1 DAILY
     Route: 048
  14. LOMOTIL (ATROPINE SULFATE (+) DIPHENOXYLATE HYDROCHLORIDE) [Concomitant]
     Dosage: UNK, PRN
     Route: 048
  15. PHENERGAN (DIBROMPROPAMIDINE ISETHIONATE (+) PROMETHAZINE) [Concomitant]
     Dosage: UNK, PRN
     Route: 048
  16. RESTASIS [Concomitant]
     Dosage: 1 DROP EACH EYE BID
     Route: 047

REACTIONS (38)
  - Mental status changes [Recovered/Resolved]
  - Vitamin B12 deficiency [Unknown]
  - Bronchitis [Unknown]
  - Rhinitis allergic [Unknown]
  - Sinusitis [Unknown]
  - Arthralgia [Unknown]
  - Arthritis [Unknown]
  - Bipolar disorder [Unknown]
  - Confusional state [Unknown]
  - Bunion [Unknown]
  - Constipation [Unknown]
  - Osteoarthritis [Unknown]
  - Dizziness [Unknown]
  - Depression [Unknown]
  - Dysuria [Unknown]
  - Oedema [Unknown]
  - Pain in extremity [Unknown]
  - Gouty arthritis [Unknown]
  - Pain in extremity [Unknown]
  - Hyperglycaemia [Unknown]
  - Hyponatraemia [Unknown]
  - Hypertension [Unknown]
  - Insomnia [Unknown]
  - Arthralgia [Unknown]
  - Arthralgia [Unknown]
  - Muscle spasms [Unknown]
  - Pain in extremity [Unknown]
  - Back pain [Unknown]
  - Amnesia [Unknown]
  - Orthostatic hypotension [Unknown]
  - Neuropathy peripheral [Unknown]
  - Ulcer [Unknown]
  - Restless legs syndrome [Unknown]
  - Stress urinary incontinence [Unknown]
  - Fall [Unknown]
  - Urinary incontinence [Unknown]
  - Urinary tract infection [Unknown]
  - Hypothyroidism [Unknown]
